FAERS Safety Report 9011004 (Version 1)
Quarter: 2013Q1

REPORT INFORMATION
  Report Type: Report from Study
  Country: US (occurrence: US)
  Receive Date: 20130109
  Receipt Date: 20130109
  Transmission Date: 20140127
  Serious: Yes (Hospitalization)
  Sender: FDA-Public Use
  Company Number: US-ABBOTT-12P-163-1029468-00

PATIENT
  Age: 34 None
  Sex: Female
  Weight: 56.75 kg

DRUGS (2)
  1. HUMIRA [Suspect]
     Indication: CROHN^S DISEASE
     Dates: start: 2008
  2. OMEPRAZOLE [Concomitant]
     Indication: PRODUCT USED FOR UNKNOWN INDICATION

REACTIONS (8)
  - Intestinal mass [Recovered/Resolved]
  - Intestinal haemorrhage [Recovered/Resolved]
  - Impaired healing [Recovered/Resolved]
  - Haematochezia [Recovering/Resolving]
  - Arthralgia [Recovering/Resolving]
  - Eye irritation [Recovering/Resolving]
  - Stress [Not Recovered/Not Resolved]
  - Drug dose omission [Recovered/Resolved]
